FAERS Safety Report 9790127 (Version 3)
Quarter: 2014Q1

REPORT INFORMATION
  Report Type: Spontaneous
  Country: CN (occurrence: CN)
  Receive Date: 20131231
  Receipt Date: 20140221
  Transmission Date: 20141002
  Serious: Yes (Hospitalization)
  Sender: FDA-Public Use
  Company Number: CN-ASTELLAS-2013JP014247

PATIENT
  Age: 49 Year
  Sex: Female
  Weight: 57.75 kg

DRUGS (4)
  1. TACROLIMUS SUSTAINED-RELEASE CAPSULES [Suspect]
     Indication: PROPHYLAXIS AGAINST TRANSPLANT REJECTION
     Dosage: 9 MG, UID/QD
     Route: 048
     Dates: start: 20131211, end: 20131211
  2. TACROLIMUS SUSTAINED-RELEASE CAPSULES [Suspect]
     Dosage: 9 MG, UID/QD
     Route: 048
     Dates: start: 20131213
  3. ATG-FRESENIUS S [Suspect]
     Indication: PROPHYLAXIS AGAINST TRANSPLANT REJECTION
     Dosage: UNK
     Route: 041
     Dates: start: 20131210, end: 20131210
  4. CELLCEPT                           /01275102/ [Concomitant]
     Indication: PROPHYLAXIS AGAINST TRANSPLANT REJECTION
     Dosage: 0.75 G, Q12 HOURS
     Route: 065
     Dates: start: 20131210

REACTIONS (4)
  - Transaminases increased [Recovered/Resolved]
  - Blood bilirubin increased [Recovered/Resolved]
  - Myoglobin blood increased [Recovered/Resolved]
  - Blood lactate dehydrogenase increased [Recovered/Resolved]
